FAERS Safety Report 5777170-6 (Version None)
Quarter: 2008Q2

REPORT INFORMATION
  Report Type: 
  Country: None (occurrence: None)
  Receive Date: 20080618
  Receipt Date: 20080604
  Transmission Date: 20081010
  Serious: No
  Sender: FDA-Public Use
  Company Number: CH-AVENTIS-200815449GDDC

PATIENT
  Age: 32 Year
  Sex: Female

DRUGS (1)
  1. ARAVA [Suspect]
     Indication: ARTHRITIS
     Dosage: DOSE QUANTITY: 20
     Route: 048
     Dates: start: 20080424, end: 20080529

REACTIONS (1)
  - DRUG EXPOSURE DURING PREGNANCY [None]
